FAERS Safety Report 8023277-2 (Version None)
Quarter: 2012Q1

REPORT INFORMATION
  Report Type: 
  Country: None (occurrence: None)
  Receive Date: 20120104
  Receipt Date: 20111228
  Transmission Date: 20120608
  Serious: Yes (Life-Threatening, Hospitalization)
  Sender: FDA-Public Use
  Company Number: IL-BRISTOL-MYERS SQUIBB COMPANY-16326894

PATIENT
  Age: 55 Year
  Sex: Male

DRUGS (3)
  1. ERBITUX [Suspect]
     Indication: COLORECTAL CANCER METASTATIC
     Dosage: NO OF INF: 4,MOST RECENT ON 13DEC11
     Dates: start: 20111031
  2. AVASTIN [Concomitant]
     Dosage: ANTI CANCER THERAPY
  3. IRINOTECAN HCL [Suspect]
     Indication: COLORECTAL CANCER METASTATIC
     Dosage: MOST RECENT ON 13DEC11
     Dates: start: 20111031

REACTIONS (1)
  - PULMONARY EMBOLISM [None]
